FAERS Safety Report 24652470 (Version 2)
Quarter: 2024Q4

REPORT INFORMATION
  Report Type: Report from Study
  Country: FR (occurrence: FR)
  Receive Date: 20241122
  Receipt Date: 20241129
  Transmission Date: 20250114
  Serious: No
  Sender: SERVIER
  Company Number: FR-SERVIER-S24014969

PATIENT

DRUGS (5)
  1. VORASIDENIB [Suspect]
     Active Substance: VORASIDENIB
     Indication: Oligodendroglioma
     Dosage: 40 MG, QD
     Route: 048
     Dates: start: 20240907, end: 20240925
  2. VORASIDENIB [Suspect]
     Active Substance: VORASIDENIB
     Dosage: 20 MG, QD
     Route: 048
     Dates: start: 20241007
  3. VORASIDENIB [Suspect]
     Active Substance: VORASIDENIB
     Dosage: UNK UNK, QD
     Route: 048
     Dates: start: 20241029
  4. VIMPAT [Concomitant]
     Active Substance: LACOSAMIDE
     Indication: Epilepsy
     Dosage: 350 MG (200 MG IN THE MORNING AND 150 MG IN THE EVENING)
     Route: 065
     Dates: start: 20240412, end: 20241002
  5. VIMPAT [Concomitant]
     Active Substance: LACOSAMIDE
     Dosage: 200 MG, BID
     Route: 065
     Dates: start: 20241002

REACTIONS (1)
  - Hepatic cytolysis [Recovered/Resolved]

NARRATIVE: CASE EVENT DATE: 20240925
